FAERS Safety Report 9290971 (Version 3)
Quarter: 2013Q2

REPORT INFORMATION
  Report Type: Spontaneous
  Country: IT (occurrence: None)
  Receive Date: 20130513
  Receipt Date: 20130611
  Transmission Date: 20140414
  Serious: Yes (Other)
  Sender: FDA-Public Use
  Company Number: IND1-IT-2013-0034

PATIENT
  Age: 42 Year
  Sex: Female

DRUGS (3)
  1. INDOMETHACIN [Suspect]
     Indication: HEADACHE
  2. PROVATRIPTAN (PROWATRIPTAN) [Concomitant]
  3. DICLOFENAC [Suspect]
     Indication: HEADACHE
     Route: 048

REACTIONS (4)
  - Periorbital oedema [None]
  - Angioedema [None]
  - Off label use [None]
  - Drug hypersensitivity [None]
